FAERS Safety Report 10881833 (Version 1)
Quarter: 2015Q1

REPORT INFORMATION
  Report Type: Report from Study
  Country: US (occurrence: US)
  Receive Date: 20150303
  Receipt Date: 20150303
  Transmission Date: 20150721
  Serious: Yes (Hospitalization)
  Sender: FDA-Public Use
  Company Number: US-BAYER-2015-016883

PATIENT
  Age: 58 Year
  Sex: Male

DRUGS (2)
  1. NEXAVAR [Suspect]
     Active Substance: SORAFENIB
     Indication: HEPATOCELLULAR CARCINOMA
  2. NEXAVAR [Suspect]
     Active Substance: SORAFENIB
     Indication: THYROID CANCER
     Dosage: 400 MG, BID
     Route: 048
     Dates: start: 20150110, end: 20150212

REACTIONS (12)
  - Abdominal pain [None]
  - Stomatitis [None]
  - Dizziness [None]
  - Asthenia [None]
  - Nausea [None]
  - Dehydration [None]
  - Rash [None]
  - Decreased appetite [None]
  - Vomiting [None]
  - Hypotension [None]
  - Weight decreased [None]
  - Hepatic enzyme increased [None]

NARRATIVE: CASE EVENT DATE: 201501
